FAERS Safety Report 19114152 (Version 2)
Quarter: 2021Q3

REPORT INFORMATION
  Report Type: Spontaneous
  Country: US (occurrence: US)
  Receive Date: 20210409
  Receipt Date: 20210906
  Transmission Date: 20211014
  Serious: Yes (Hospitalization)
  Sender: FDA-Public Use
  Company Number: US-BIOCODEX SA-2021000241

PATIENT

DRUGS (11)
  1. FELBAMATE. [Concomitant]
     Active Substance: FELBAMATE
     Indication: PRODUCT USED FOR UNKNOWN INDICATION
     Route: 065
  2. DIASTAT [DIAZEPAM] [Concomitant]
     Indication: PRODUCT USED FOR UNKNOWN INDICATION
     Route: 065
  3. MIRALAX [Concomitant]
     Active Substance: POLYETHYLENE GLYCOL 3350
     Indication: PRODUCT USED FOR UNKNOWN INDICATION
     Route: 065
  4. TOPAMAX [Concomitant]
     Active Substance: TOPIRAMATE
     Indication: PRODUCT USED FOR UNKNOWN INDICATION
     Route: 065
  5. EPIDIOLEX [Concomitant]
     Active Substance: CANNABIDIOL
     Indication: PRODUCT USED FOR UNKNOWN INDICATION
     Route: 065
  6. DIACOMIT [Suspect]
     Active Substance: STIRIPENTOL
     Indication: LENNOX-GASTAUT SYNDROME
     Dosage: 500 MG TWICE DAILY
     Route: 065
     Dates: start: 20200616
  7. KEPPRA [Concomitant]
     Active Substance: LEVETIRACETAM
     Indication: PRODUCT USED FOR UNKNOWN INDICATION
     Route: 065
  8. DIACOMIT [Suspect]
     Active Substance: STIRIPENTOL
     Indication: SEIZURE
  9. ONFI [Concomitant]
     Active Substance: CLOBAZAM
     Indication: PRODUCT USED FOR UNKNOWN INDICATION
     Route: 065
  10. AUGMENTIN [Concomitant]
     Active Substance: AMOXICILLIN\CLAVULANATE POTASSIUM
     Indication: PRODUCT USED FOR UNKNOWN INDICATION
     Route: 065
  11. DIACOMIT [Suspect]
     Active Substance: STIRIPENTOL
     Indication: EPILEPSY
     Dosage: 750 MG TWICE DAILY
     Route: 065

REACTIONS (3)
  - Seizure [Unknown]
  - Product use in unapproved indication [Unknown]
  - Product dose omission issue [Unknown]
